FAERS Safety Report 15139594 (Version 1)
Quarter: 2018Q3

REPORT INFORMATION
  Report Type: Other
  Country: CN (occurrence: CN)
  Receive Date: 20180713
  Receipt Date: 20180713
  Transmission Date: 20181010
  Serious: Yes (Other)
  Sender: FDA-Public Use
  Company Number: CN-APOTEX-2018AP017054

PATIENT
  Age: 27 Year
  Sex: Female

DRUGS (3)
  1. SEROXAT [Suspect]
     Active Substance: PAROXETINE HYDROCHLORIDE
     Dosage: 20 MG, QD
     Route: 048
     Dates: start: 20180411, end: 20180413
  2. SEROXAT [Suspect]
     Active Substance: PAROXETINE HYDROCHLORIDE
     Indication: SOMATIC SYMPTOM DISORDER
     Dosage: 10 MG, QD
     Route: 048
     Dates: start: 20180407, end: 20180410
  3. ALPRAZOLAM. [Suspect]
     Active Substance: ALPRAZOLAM
     Indication: SLEEP DISORDER
     Dosage: 0.2 MG, BID
     Route: 048
     Dates: start: 20180407, end: 20180413

REACTIONS (4)
  - Conjunctivitis [Not Recovered/Not Resolved]
  - Product use in unapproved indication [Unknown]
  - Asthenopia [Not Recovered/Not Resolved]
  - Vision blurred [Not Recovered/Not Resolved]

NARRATIVE: CASE EVENT DATE: 20180413
